FAERS Safety Report 4322743-0 (Version None)
Quarter: 2004Q1

REPORT INFORMATION
  Report Type: 
  Country: None (occurrence: None)
  Receive Date: 20040324
  Receipt Date: 20040126
  Transmission Date: 20041129
  Serious: Yes (Hospitalization, Other)
  Sender: FDA-Public Use
  Company Number: NL-GLAXOSMITHKLINE-B0321637A

PATIENT
  Age: 48 Year
  Sex: Male
  Weight: 90 kg

DRUGS (1)
  1. AVANDIA [Suspect]
     Indication: DIABETES MELLITUS NON-INSULIN-DEPENDENT
     Route: 048
     Dates: start: 20030901, end: 20031201

REACTIONS (2)
  - ANAEMIA [None]
  - RENAL HAEMORRHAGE [None]
